FAERS Safety Report 15665061 (Version 1)
Quarter: 2018Q4

REPORT INFORMATION
  Report Type: Spontaneous
  Country: FR (occurrence: FR)
  Receive Date: 20181128
  Receipt Date: 20181128
  Transmission Date: 20190205
  Serious: Yes (Other)
  Sender: FDA-Public Use
  Company Number: PHHY2018FR065695

PATIENT
  Age: 27 Year
  Sex: Male

DRUGS (3)
  1. VALIUM [Concomitant]
     Active Substance: DIAZEPAM
     Indication: PRODUCT USED FOR UNKNOWN INDICATION
     Dosage: UNK
     Route: 065
  2. RITALINE LP [Suspect]
     Active Substance: METHYLPHENIDATE HYDROCHLORIDE
     Indication: DRUG DEPENDENCE
     Dosage: 40 MG, BID
     Route: 065
     Dates: start: 2017
  3. RITALINE LP [Suspect]
     Active Substance: METHYLPHENIDATE HYDROCHLORIDE
     Dosage: 80 MG, BID (OFTEN TOOK DOUBLE DAILY DOSE, WITH 80MG IN THE MORNING AND 80MG IN THE EVENING)
     Route: 065

REACTIONS (4)
  - Drug abuse [Unknown]
  - Anxiety [Unknown]
  - Product use in unapproved indication [Unknown]
  - Withdrawal syndrome [Unknown]
